FAERS Safety Report 12993569 (Version 1)
Quarter: 2016Q4

REPORT INFORMATION
  Report Type: Spontaneous
  Country: US (occurrence: US)
  Receive Date: 20161202
  Receipt Date: 20161202
  Transmission Date: 20170207
  Serious: No
  Sender: FDA-Public Use
  Company Number: US-JNJFOC-20161114634

PATIENT
  Age: 9 Year
  Sex: Male
  Weight: 99.79 kg

DRUGS (2)
  1. RISPERDAL [Suspect]
     Active Substance: RISPERIDONE
     Indication: ATTENTION DEFICIT/HYPERACTIVITY DISORDER
     Route: 048
     Dates: start: 200309, end: 200607
  2. RISPERDAL [Suspect]
     Active Substance: RISPERIDONE
     Indication: DEVELOPMENTAL DELAY
     Route: 048
     Dates: start: 200309, end: 200607

REACTIONS (4)
  - Weight increased [Unknown]
  - Product use issue [Unknown]
  - Gynaecomastia [Unknown]
  - Off label use [Unknown]

NARRATIVE: CASE EVENT DATE: 200309
